FAERS Safety Report 19132256 (Version 3)
Quarter: 2021Q3

REPORT INFORMATION
  Report Type: Spontaneous
  Country: US (occurrence: US)
  Receive Date: 20210413
  Receipt Date: 20210901
  Transmission Date: 20211014
  Serious: No
  Sender: FDA-Public Use
  Company Number: US-TEVA-2021-US-1899012

PATIENT
  Age: 69 Year
  Sex: Male

DRUGS (4)
  1. METOPROLOL SUCCINATE TEVA [Suspect]
     Active Substance: METOPROLOL SUCCINATE
     Dosage: EXTENDED?RELEASE TABLETS
     Route: 065
  2. ACETAMINOPHEN W/CODEINE NOSTRUM [Concomitant]
     Route: 065
  3. NITROSTAT [Concomitant]
     Active Substance: NITROGLYCERIN
  4. DIAZEPAM TEVA [Concomitant]
     Active Substance: DIAZEPAM

REACTIONS (3)
  - Bladder dysfunction [Unknown]
  - Asthma [Unknown]
  - Hypersensitivity [Unknown]
